FAERS Safety Report 14070246 (Version 1)
Quarter: 2017Q4

REPORT INFORMATION
  Report Type: Spontaneous
  Country: ZA (occurrence: ZA)
  Receive Date: 20171010
  Receipt Date: 20171010
  Transmission Date: 20180321
  Serious: Yes (Death, Hospitalization)
  Sender: FDA-Public Use
  Company Number: ZA-TEVA-812131ISR

PATIENT
  Age: 34 Year
  Sex: Male
  Weight: 46 kg

DRUGS (11)
  1. DELAMANID [Suspect]
     Active Substance: DELAMANID
     Indication: TUBERCULOSIS
     Dosage: 200 MILLIGRAM DAILY;
     Route: 048
     Dates: start: 20170419
  2. EFV [Concomitant]
     Indication: HIV TEST POSITIVE
     Dates: start: 20170411
  3. TDF [Concomitant]
     Active Substance: DILOXANIDE FUROATE\TINIDAZOLE
     Indication: HIV TEST POSITIVE
     Dates: start: 20170411
  4. LEVOFLOXACIN. [Suspect]
     Active Substance: LEVOFLOXACIN
     Indication: TUBERCULOSIS
     Dosage: 1 GRAM DAILY;
     Route: 048
     Dates: start: 20170318
  5. ETHIONAMIDE [Suspect]
     Active Substance: ETHIONAMIDE
     Indication: TUBERCULOSIS
     Dosage: 500 MILLIGRAM DAILY;
     Route: 048
     Dates: start: 20170318
  6. HDINH (ISONIAZID) [Suspect]
     Active Substance: ISONIAZID
     Indication: TUBERCULOSIS
     Dosage: 600 MILLIGRAM DAILY;
     Route: 048
     Dates: start: 20170318
  7. PYRIDOXINE [Suspect]
     Active Substance: PYRIDOXINE
     Indication: TUBERCULOSIS
     Dosage: 150 MILLIGRAM DAILY;
     Route: 065
     Dates: start: 201703
  8. ETHAMBUTOL [Suspect]
     Active Substance: ETHAMBUTOL HYDROCHLORIDE
     Indication: TUBERCULOSIS
     Route: 048
  9. FTC [Concomitant]
     Active Substance: EMTRICITABINE
     Indication: HIV TEST POSITIVE
     Dates: start: 20170411
  10. TERIZIDONE [Suspect]
     Active Substance: TERIZIDONE
     Indication: TUBERCULOSIS
     Dosage: 750 MILLIGRAM DAILY;
     Route: 048
     Dates: start: 20170318
  11. PYRAZINAMIDE. [Suspect]
     Active Substance: PYRAZINAMIDE
     Indication: TUBERCULOSIS
     Dosage: 1.75 GRAM DAILY;
     Route: 048
     Dates: start: 20170318

REACTIONS (3)
  - Generalised tonic-clonic seizure [Fatal]
  - Brain abscess [Fatal]
  - Treatment noncompliance [Unknown]

NARRATIVE: CASE EVENT DATE: 20170621
